FAERS Safety Report 14794119 (Version 4)
Quarter: 2019Q2

REPORT INFORMATION
  Report Type: Spontaneous
  Country: US (occurrence: US)
  Receive Date: 20180423
  Receipt Date: 20190409
  Transmission Date: 20190711
  Serious: Yes (Hospitalization)
  Sender: FDA-Public Use
  Company Number: US-SA-2018SA111546

PATIENT
  Age: 48 Year
  Sex: Male

DRUGS (5)
  1. PRALUENT [Suspect]
     Active Substance: ALIROCUMAB
     Indication: TYPE V HYPERLIPIDAEMIA
     Dosage: 150 MG,QOW
     Route: 058
     Dates: start: 201607
  2. WELLBUTRIN [Interacting]
     Active Substance: BUPROPION HYDROCHLORIDE
     Dosage: UNK UNK,UNK
     Route: 065
  3. PRALUENT [Interacting]
     Active Substance: ALIROCUMAB
     Indication: ARTERIOSCLEROSIS
     Dosage: 150 MG
     Route: 058
     Dates: start: 201812
  4. PREGABALIN. [Suspect]
     Active Substance: PREGABALIN
  5. CYMBALTA [Concomitant]
     Active Substance: DULOXETINE HYDROCHLORIDE
     Dosage: UNK UNK,UNK
     Route: 065

REACTIONS (6)
  - Dysuria [Unknown]
  - Rash [Unknown]
  - Drug interaction [Unknown]
  - Catheterisation cardiac [Unknown]
  - Urinary tract infection [Unknown]
  - Rash pruritic [Unknown]

NARRATIVE: CASE EVENT DATE: 20180307
